FAERS Safety Report 24639838 (Version 1)
Quarter: 2024Q4

REPORT INFORMATION
  Report Type: Spontaneous
  Country: US (occurrence: US)
  Receive Date: 20241120
  Receipt Date: 20241120
  Transmission Date: 20250115
  Serious: Yes (Other)
  Sender: AUROBINDO
  Company Number: US-MLMSERVICE-20241104-PI245829-00270-2

PATIENT
  Age: 19 Year
  Sex: Female

DRUGS (2)
  1. METHYLPREDNISOLONE [Suspect]
     Active Substance: METHYLPREDNISOLONE
     Indication: Steroid therapy
     Dosage: METHYLPREDNISOLONE STARTED AND WEANED
     Route: 065
  2. PREDNISONE [Suspect]
     Active Substance: PREDNISONE
     Indication: Steroid therapy
     Dosage: PREDNISONE STARTED AND WEANED
     Route: 065

REACTIONS (7)
  - Cytomegalovirus viraemia [Unknown]
  - Pneumonia bacterial [Unknown]
  - Urinary tract infection bacterial [Unknown]
  - Pancytopenia [Unknown]
  - Lactic acidosis [Unknown]
  - Hypotension [Unknown]
  - Tachycardia [Unknown]
